FAERS Safety Report 4781402-0 (Version None)
Quarter: 2005Q3

REPORT INFORMATION
  Report Type: 
  Country: None (occurrence: None)
  Receive Date: 20050928
  Receipt Date: 20050916
  Transmission Date: 20060218
  Serious: Yes (Other)
  Sender: FDA-Public Use
  Company Number: DE-MERCK-0509DEU00104

PATIENT
  Sex: Female

DRUGS (1)
  1. VIOXX [Suspect]
     Indication: NECK PAIN
     Route: 048
     Dates: start: 20010101

REACTIONS (2)
  - CEREBRAL INFARCTION [None]
  - GRAND MAL CONVULSION [None]
